FAERS Safety Report 6422352-3 (Version None)
Quarter: 2009Q4

REPORT INFORMATION
  Report Type: 
  Country: None (occurrence: None)
  Receive Date: 20091030
  Receipt Date: 20091023
  Transmission Date: 20100525
  Serious: Yes (Hospitalization)
  Sender: FDA-Public Use
  Company Number: PHHO2009FR11588

PATIENT
  Sex: Male
  Weight: 82 kg

DRUGS (1)
  1. RAD 666 RAD+TAB [Suspect]
     Indication: RENAL CANCER METASTATIC
     Dosage: 10 MG/DAY
     Route: 048
     Dates: start: 20090615, end: 20090913

REACTIONS (5)
  - BACK PAIN [None]
  - HAEMATURIA [None]
  - RENAL COLIC [None]
  - RENAL CYST [None]
  - RENAL MASS [None]
